FAERS Safety Report 7903699-8 (Version None)
Quarter: 2011Q4

REPORT INFORMATION
  Report Type: 
  Country: None (occurrence: None)
  Receive Date: 20111109
  Receipt Date: 20111031
  Transmission Date: 20120403
  Serious: Yes (Other)
  Sender: FDA-Public Use
  Company Number: US-JNJFOC-20111100488

PATIENT
  Sex: Male
  Weight: 100.7 kg

DRUGS (8)
  1. DARVOCET [Concomitant]
     Indication: PAIN
     Route: 048
     Dates: end: 20110101
  2. PROZAC [Concomitant]
     Indication: FIBROMYALGIA
     Route: 048
     Dates: end: 20110901
  3. LORTAB [Suspect]
     Indication: PAIN
     Route: 065
  4. SOMA [Concomitant]
     Indication: PAIN
     Route: 048
  5. DURAGESIC-100 [Suspect]
     Indication: FIBROMYALGIA
     Route: 062
  6. VALIUM [Concomitant]
     Indication: PAIN
     Route: 048
  7. DURAGESIC-100 [Suspect]
     Indication: PAIN
     Route: 062
     Dates: end: 20110901
  8. DURAGESIC-100 [Suspect]
     Route: 062
     Dates: start: 20110901

REACTIONS (6)
  - RESTLESS LEGS SYNDROME [None]
  - DRUG INEFFECTIVE [None]
  - HEADACHE [None]
  - FIBROMYALGIA [None]
  - ABDOMINAL DISCOMFORT [None]
  - CHRONIC OBSTRUCTIVE PULMONARY DISEASE [None]
